FAERS Safety Report 13884500 (Version 1)
Quarter: 2017Q3

REPORT INFORMATION
  Report Type: Spontaneous
  Country: US (occurrence: US)
  Receive Date: 20170821
  Receipt Date: 20170821
  Transmission Date: 20171127
  Serious: No
  Sender: FDA-Public Use
  Company Number: US-TEVA-725925ACC

PATIENT
  Age: 79 Year
  Sex: Female
  Weight: 72.64 kg

DRUGS (1)
  1. FLUOXETINE [Suspect]
     Active Substance: FLUOXETINE HYDROCHLORIDE
     Indication: DEPRESSION
     Dates: start: 20161018

REACTIONS (2)
  - Product substitution issue [Unknown]
  - Nausea [Unknown]

NARRATIVE: CASE EVENT DATE: 20161018
